FAERS Safety Report 6220264-1 (Version None)
Quarter: 2009Q2

REPORT INFORMATION
  Report Type: 
  Country: None (occurrence: None)
  Receive Date: 20090605
  Receipt Date: 20090525
  Transmission Date: 20091009
  Serious: No
  Sender: FDA-Public Use
  Company Number: 2009-197398-NL

PATIENT

DRUGS (1)
  1. NUVARING [Suspect]
     Dosage: TRANSPLACENTAL 1 WEEK 6 DAYS
     Route: 064
     Dates: start: 20080618, end: 20080630

REACTIONS (5)
  - CAESAREAN SECTION [None]
  - FOETAL DISORDER [None]
  - MATERNAL DRUGS AFFECTING FOETUS [None]
  - PREMATURE BABY [None]
  - VOLVULUS [None]
